FAERS Safety Report 5139914-6 (Version None)
Quarter: 2006Q4

REPORT INFORMATION
  Report Type: 
  Country: None (occurrence: None)
  Receive Date: 20061026
  Receipt Date: 20061026
  Transmission Date: 20070319
  Serious: Yes (Hospitalization)
  Sender: FDA-Public Use
  Company Number: None

PATIENT
  Age: 59 Year
  Sex: Male

DRUGS (4)
  1. CYCLOPHOSPHAMIDE [Suspect]
     Indication: B-CELL LYMPHOMA
     Dates: start: 20060622
  2. DOXORUBICIN HCL [Suspect]
  3. VINCRISTINE [Suspect]
  4. RITUXIMAB  592MG [Suspect]

REACTIONS (3)
  - CANDIDIASIS [None]
  - MUCOSAL INFLAMMATION [None]
  - ODYNOPHAGIA [None]
